FAERS Safety Report 12626383 (Version 1)
Quarter: 2016Q3

REPORT INFORMATION
  Report Type: Spontaneous
  Country: US (occurrence: US)
  Receive Date: 20160805
  Receipt Date: 20160805
  Transmission Date: 20161109
  Serious: No
  Sender: FDA-Public Use
  Company Number: US-PERRIGO-15US012829

PATIENT
  Sex: Female
  Weight: 104.31 kg

DRUGS (2)
  1. ECONAZOLE NITRATE. [Suspect]
     Active Substance: ECONAZOLE NITRATE
     Indication: FUNGAL SKIN INFECTION
     Dosage: 1 APPLICATION, BID
     Route: 061
     Dates: start: 2013, end: 201509
  2. ECONAZOLE NITRATE. [Suspect]
     Active Substance: ECONAZOLE NITRATE
     Dosage: 1 APPLICATION, QOD
     Route: 061
     Dates: start: 201509

REACTIONS (3)
  - Incorrect drug administration duration [Unknown]
  - Intentional product misuse [Unknown]
  - Drug effect decreased [Unknown]

NARRATIVE: CASE EVENT DATE: 2013
